FAERS Safety Report 3749316 (Version 3)
Quarter: 2020Q3

REPORT INFORMATION
  Report Type: Report from Study
  Country: US (occurrence: US)
  Receive Date: 20020109
  Receipt Date: 20080807
  Transmission Date: 20201104
  Serious: Yes (Death, Hospitalization)
  Sender: FDA-Public Use
  Company Number: NSADSS2002000609

PATIENT
  Age: 60 Year
  Sex: Female
  Weight: 58.97 kg

DRUGS (10)
  1. CISAPRIDE [Suspect]
     Active Substance: CISAPRIDE
     Indication: DIABETIC GASTROPARESIS
     Route: 048
     Dates: start: 20010208, end: 20011031
  2. PREMPRO [Concomitant]
     Active Substance: ESTROGENS, CONJUGATED\MEDROXYPROGESTERONE ACETATE
     Indication: HORMONE REPLACEMENT THERAPY
     Route: 048
  3. DARVOCET?N 100 [Concomitant]
     Active Substance: ACETAMINOPHEN\PROPOXYPHENE NAPSYLATE
     Indication: DIABETIC NEUROPATHY
     Route: 048
  4. NASACORT [Concomitant]
     Active Substance: TRIAMCINOLONE ACETONIDE
     Indication: RHINITIS ALLERGIC
     Dosage: 2 SPRAYS EACH NOSTRIL.
     Route: 045
  5. ISOPHANE INSULIN [Concomitant]
     Active Substance: INSULIN NOS
     Indication: DIABETES MELLITUS
     Dosage: 8R IN AM AND 2R IN PM
  6. DULCOLAX (BISACODYL) [Concomitant]
     Active Substance: BISACODYL
     Indication: CONSTIPATION
     Route: 048
  7. PRILOSEC [Concomitant]
     Active Substance: OMEPRAZOLE MAGNESIUM
     Indication: GASTROOESOPHAGEAL REFLUX DISEASE
     Route: 048
  8. CISAPRIDE [Suspect]
     Active Substance: CISAPRIDE
     Indication: IMPAIRED GASTRIC EMPTYING
     Route: 048
     Dates: start: 20010208, end: 20011031
  9. NPH ILETIN II [Concomitant]
     Active Substance: INSULIN BEEF/PORK
     Indication: DIABETES MELLITUS
     Dosage: 8N IN AM AND 6N IN PM
  10. LACTULOSE. [Concomitant]
     Active Substance: LACTULOSE
     Indication: CONSTIPATION
     Route: 048

REACTIONS (6)
  - Condition aggravated [Not Recovered/Not Resolved]
  - Diabetic gastropathy [Fatal]
  - Drug ineffective [Recovered/Resolved]
  - Hip fracture [Recovered/Resolved]
  - Sepsis [Fatal]
  - Jaundice cholestatic [Fatal]

NARRATIVE: CASE EVENT DATE: 20010419
